FAERS Safety Report 6160434-4 (Version None)
Quarter: 2009Q2

REPORT INFORMATION
  Report Type: 
  Country: None (occurrence: None)
  Receive Date: 20090416
  Receipt Date: 20090406
  Transmission Date: 20091009
  Serious: Yes (Life-Threatening)
  Sender: FDA-Public Use
  Company Number: 243950

PATIENT
  Age: 24 Year
  Sex: Male

DRUGS (6)
  1. METHOTREXATE [Suspect]
     Indication: CROHN'S DISEASE
     Dosage: 25 MG WEEKLY;
     Dates: start: 20060101
  2. AZATHIOPRINE [Suspect]
     Indication: CROHN'S DISEASE
     Dates: start: 20030101, end: 20060101
  3. INFLIXIMAB [Suspect]
     Indication: CROHN'S DISEASE
     Dosage: 5 MG/KG, 3 DOSES, INFUSION, 10 MCG/KG;
     Dates: start: 20040101
  4. INFLIXIMAB [Suspect]
     Indication: CROHN'S DISEASE
     Dosage: 5 MG/KG, 3 DOSES, INFUSION, 10 MCG/KG;
     Dates: start: 20071001
  5. PREDNISOLONE [Suspect]
     Indication: CROHN'S DISEASE
     Dosage: 40 MG,
  6. CORTICOSTEROIDS [Suspect]
     Indication: CROHN'S DISEASE

REACTIONS (8)
  - CONDITION AGGRAVATED [None]
  - CROHN'S DISEASE [None]
  - HYPOTENSION [None]
  - MENINGITIS LISTERIA [None]
  - MYALGIA [None]
  - NIGHT SWEATS [None]
  - OPPORTUNISTIC INFECTION [None]
  - TACHYCARDIA [None]
